FAERS Safety Report 6771144-4 (Version None)
Quarter: 2010Q2

REPORT INFORMATION
  Report Type: 
  Country: None (occurrence: None)
  Receive Date: 20100614
  Receipt Date: 20100614
  Transmission Date: 20101027
  Serious: Yes (Life-Threatening, Hospitalization)
  Sender: FDA-Public Use
  Company Number: None

PATIENT

DRUGS (1)
  1. KEFLEX [Suspect]
     Dosage: ONE PILL EVERY 3 HOUR

REACTIONS (1)
  - PLATELET COUNT DECREASED [None]
